FAERS Safety Report 18992584 (Version 1)
Quarter: 2021Q1

REPORT INFORMATION
  Report Type: Spontaneous
  Country: FR (occurrence: FR)
  Receive Date: 20210310
  Receipt Date: 20210310
  Transmission Date: 20210420
  Serious: Yes (Life-Threatening)
  Sender: FDA-Public Use
  Company Number: FR-ASTRAZENECA-2021A106445

PATIENT
  Age: 35 Year
  Sex: Female
  Weight: 95.2 kg

DRUGS (1)
  1. XIGDUO XR [Suspect]
     Active Substance: DAPAGLIFLOZIN PROPANEDIOL\METFORMIN HYDROCHLORIDE
     Indication: TYPE 2 DIABETES MELLITUS
     Dosage: 5 MG/1000 MG, 1 DF, UNKNOWN
     Route: 048
     Dates: end: 20210206

REACTIONS (1)
  - Coma acidotic [Recovering/Resolving]

NARRATIVE: CASE EVENT DATE: 20210206
